FAERS Safety Report 6273777-0 (Version None)
Quarter: 2009Q3

REPORT INFORMATION
  Report Type: 
  Country: None (occurrence: None)
  Receive Date: 20090716
  Receipt Date: 20090709
  Transmission Date: 20100115
  Serious: Yes (Other)
  Sender: FDA-Public Use
  Company Number: ADR5822009(ARROW LOG NO. 2008AG1363)

PATIENT
  Age: 19 Year
  Sex: Female

DRUGS (1)
  1. CITALOPRAM (MFR UNKNOWN) [Suspect]
     Dosage: 40-60 MG THREE TIMES, ORAL
     Route: 048
     Dates: start: 20050108, end: 20060106

REACTIONS (1)
  - HYPERSEXUALITY [None]
